FAERS Safety Report 9515992 (Version 1)
Quarter: 2013Q3

REPORT INFORMATION
  Report Type: Report from Study
  Country: JP (occurrence: JP)
  Receive Date: 20130911
  Receipt Date: 20130911
  Transmission Date: 20140515
  Serious: Yes (Hospitalization)
  Sender: FDA-Public Use
  Company Number: JP-TAKEDA-TCI2013A04911

PATIENT
  Age: 61 Year
  Sex: Male

DRUGS (10)
  1. ALOGLIPTIN [Suspect]
     Indication: TYPE 2 DIABETES MELLITUS
     Route: 048
     Dates: start: 20120619
  2. ACTOS [Concomitant]
     Indication: TYPE 2 DIABETES MELLITUS
     Route: 048
  3. AMARYL [Concomitant]
     Indication: TYPE 2 DIABETES MELLITUS
     Route: 048
  4. METGLUCO [Concomitant]
     Indication: TYPE 2 DIABETES MELLITUS
     Route: 048
  5. LYRICA [Concomitant]
     Route: 048
  6. BUFFERIN [Concomitant]
     Route: 048
  7. LUMIGAN [Concomitant]
     Route: 047
  8. TIMOPTOL [Concomitant]
     Route: 047
  9. CARBAZOCHROME SODIUM SULFONATE [Concomitant]
     Route: 048
  10. HYALEIN [Concomitant]
     Route: 047

REACTIONS (3)
  - Diabetic gangrene [Recovering/Resolving]
  - Angina pectoris [Recovering/Resolving]
  - Peripheral arterial occlusive disease [Not Recovered/Not Resolved]
